FAERS Safety Report 6551773-3 (Version None)
Quarter: 2010Q1

REPORT INFORMATION
  Report Type: 
  Country: None (occurrence: None)
  Receive Date: 20100120
  Receipt Date: 20100108
  Transmission Date: 20100710
  Serious: Yes (Hospitalization, Other)
  Sender: FDA-Public Use
  Company Number: 2009SP017372

PATIENT
  Age: 53 Year
  Sex: Female
  Weight: 68.0396 kg

DRUGS (20)
  1. NUVARING [Suspect]
     Indication: HORMONE REPLACEMENT THERAPY
     Dosage: 1 DF;QM;VAG
     Route: 067
     Dates: start: 20030801, end: 20070101
  2. MOBIC [Concomitant]
  3. SKELAXIN [Concomitant]
  4. ALEVE (CAPLET) [Concomitant]
  5. AMBIEN CR [Concomitant]
  6. ALLEGRA [Concomitant]
  7. ZOLOFT [Concomitant]
  8. EFFEXOR XR [Concomitant]
  9. PREDNISONE 6 [Concomitant]
  10. TRETINOIN [Concomitant]
  11. FLUOROMETHOLONE [Concomitant]
  12. HYDROCODONE BITARTRATE AND ACETAMINOPHEN [Concomitant]
  13. TOBRADEX [Concomitant]
  14. ZITHRMOAX Z-PAK [Concomitant]
  15. BACTROBAN [Concomitant]
  16. DOXYCYCLINE [Concomitant]
  17. TRILYTE [Concomitant]
  18. SULFAMETHOXAZOLE AND TRIMETHOPRIM [Concomitant]
  19. HYDROCODONE BITARTRATE AND ACETAMINOPHEN [Concomitant]
  20. TRANSDERM SCOP [Concomitant]

REACTIONS (15)
  - BACK PAIN [None]
  - DIVERTICULUM INTESTINAL [None]
  - EYELID PTOSIS [None]
  - FOLLICULITIS [None]
  - HAEMATOCHEZIA [None]
  - HAEMORRHOIDS [None]
  - HYPOAESTHESIA [None]
  - INTERVERTEBRAL DISC PROTRUSION [None]
  - LUMBAR SPINAL STENOSIS [None]
  - NAUSEA [None]
  - PARAESTHESIA [None]
  - PULMONARY EMBOLISM [None]
  - SKIN CANCER [None]
  - URINARY TRACT INFECTION [None]
  - VOMITING [None]
